FAERS Safety Report 15291691 (Version 1)
Quarter: 2018Q3

REPORT INFORMATION
  Report Type: Spontaneous
  Country: GB (occurrence: GB)
  Receive Date: 20180817
  Receipt Date: 20180817
  Transmission Date: 20181010
  Serious: Yes (Other)
  Sender: FDA-Public Use
  Company Number: GB-BIOGEN-2018BI00524337

PATIENT
  Age: 42 Year
  Sex: Female

DRUGS (4)
  1. PLEGRIDY [Suspect]
     Active Substance: PEGINTERFERON BETA-1A
     Indication: MULTIPLE SCLEROSIS
     Route: 058
     Dates: start: 20180202
  2. PLEGRIDY [Suspect]
     Active Substance: PEGINTERFERON BETA-1A
     Route: 058
  3. PLEGRIDY [Suspect]
     Active Substance: PEGINTERFERON BETA-1A
     Route: 058
     Dates: start: 20180205
  4. PLEGRIDY [Suspect]
     Active Substance: PEGINTERFERON BETA-1A
     Route: 058

REACTIONS (11)
  - Back pain [Unknown]
  - Contusion [Recovered/Resolved]
  - Gait disturbance [Unknown]
  - Swelling [Not Recovered/Not Resolved]
  - Spinal disorder [Unknown]
  - Depression [Unknown]
  - Groin pain [Recovered/Resolved]
  - Musculoskeletal pain [Unknown]
  - Pain in extremity [Recovered/Resolved]
  - Blindness transient [Unknown]
  - Stress [Unknown]

NARRATIVE: CASE EVENT DATE: 20180206
